FAERS Safety Report 7682505-3 (Version None)
Quarter: 2011Q3

REPORT INFORMATION
  Report Type: 
  Country: None (occurrence: None)
  Receive Date: 20110815
  Receipt Date: 20110801
  Transmission Date: 20111222
  Serious: Yes (Hospitalization, Other)
  Sender: FDA-Public Use
  Company Number: PHHY2011BR69435

PATIENT
  Sex: Male

DRUGS (1)
  1. DIOVAN HCT [Suspect]
     Dosage: 1 DF, DAY (VALSARTAN 160 MG/HYDROCHLOROTHIAZIDE 12.5 MG)
     Route: 048

REACTIONS (2)
  - GASTRITIS BACTERIAL [None]
  - CHEST PAIN [None]
